FAERS Safety Report 7406170-5 (Version None)
Quarter: 2011Q2

REPORT INFORMATION
  Report Type: 
  Country: None (occurrence: None)
  Receive Date: 20110406
  Receipt Date: 20110406
  Transmission Date: 20111010
  Serious: Yes (Other)
  Sender: FDA-Public Use
  Company Number: None

PATIENT
  Sex: Male
  Weight: 99.3377 kg

DRUGS (1)
  1. ADDERALL XR GENERIC 20MG [Suspect]

REACTIONS (2)
  - AGITATION [None]
  - INSOMNIA [None]
